FAERS Safety Report 25586358 (Version 1)
Quarter: 2025Q3

REPORT INFORMATION
  Report Type: Spontaneous
  Country: US (occurrence: US)
  Receive Date: 20250721
  Receipt Date: 20250721
  Transmission Date: 20251021
  Serious: Yes (Hospitalization, Other)
  Sender: MYLAN
  Company Number: US-MYLANLABS-2025M1059224

PATIENT
  Age: 3 Year
  Sex: Female
  Weight: 13.7 kg

DRUGS (52)
  1. LEVETIRACETAM [Suspect]
     Active Substance: LEVETIRACETAM
     Indication: Status epilepticus
  2. LEVETIRACETAM [Suspect]
     Active Substance: LEVETIRACETAM
     Route: 065
  3. LEVETIRACETAM [Suspect]
     Active Substance: LEVETIRACETAM
     Route: 065
  4. LEVETIRACETAM [Suspect]
     Active Substance: LEVETIRACETAM
  5. LACOSAMIDE [Suspect]
     Active Substance: LACOSAMIDE
     Indication: Status epilepticus
  6. LACOSAMIDE [Suspect]
     Active Substance: LACOSAMIDE
     Route: 065
  7. LACOSAMIDE [Suspect]
     Active Substance: LACOSAMIDE
     Route: 065
  8. LACOSAMIDE [Suspect]
     Active Substance: LACOSAMIDE
  9. VALPROIC ACID [Suspect]
     Active Substance: VALPROIC ACID
     Indication: Status epilepticus
  10. VALPROIC ACID [Suspect]
     Active Substance: VALPROIC ACID
     Route: 065
  11. VALPROIC ACID [Suspect]
     Active Substance: VALPROIC ACID
     Route: 065
  12. VALPROIC ACID [Suspect]
     Active Substance: VALPROIC ACID
  13. PERAMPANEL [Concomitant]
     Active Substance: PERAMPANEL
     Indication: Status epilepticus
     Dosage: 0.9 MILLIGRAM/KILOGRAM, QD (LOADING DOSE WAS 12MG)
     Route: 065
  14. PERAMPANEL [Concomitant]
     Active Substance: PERAMPANEL
     Dosage: 0.9 MILLIGRAM/KILOGRAM, QD (LOADING DOSE WAS 12MG)
  15. PERAMPANEL [Concomitant]
     Active Substance: PERAMPANEL
     Dosage: 0.9 MILLIGRAM/KILOGRAM, QD (LOADING DOSE WAS 12MG)
  16. PERAMPANEL [Concomitant]
     Active Substance: PERAMPANEL
     Dosage: 0.9 MILLIGRAM/KILOGRAM, QD (LOADING DOSE WAS 12MG)
     Route: 065
  17. PERAMPANEL [Concomitant]
     Active Substance: PERAMPANEL
     Dosage: 0.3 MILLIGRAM/KILOGRAM, QD (MAINTENANCE DOSE 4MG)
     Route: 065
  18. PERAMPANEL [Concomitant]
     Active Substance: PERAMPANEL
     Dosage: 0.3 MILLIGRAM/KILOGRAM, QD (MAINTENANCE DOSE 4MG)
  19. PERAMPANEL [Concomitant]
     Active Substance: PERAMPANEL
     Dosage: 0.3 MILLIGRAM/KILOGRAM, QD (MAINTENANCE DOSE 4MG)
  20. PERAMPANEL [Concomitant]
     Active Substance: PERAMPANEL
     Dosage: 0.3 MILLIGRAM/KILOGRAM, QD (MAINTENANCE DOSE 4MG)
     Route: 065
  21. PERAMPANEL [Concomitant]
     Active Substance: PERAMPANEL
     Dosage: 0.4 MILLIGRAM/KILOGRAM, QD (INCREASED TO 6MG)
  22. PERAMPANEL [Concomitant]
     Active Substance: PERAMPANEL
     Dosage: 0.4 MILLIGRAM/KILOGRAM, QD (INCREASED TO 6MG)
  23. PERAMPANEL [Concomitant]
     Active Substance: PERAMPANEL
     Dosage: 0.4 MILLIGRAM/KILOGRAM, QD (INCREASED TO 6MG)
     Route: 065
  24. PERAMPANEL [Concomitant]
     Active Substance: PERAMPANEL
     Dosage: 0.4 MILLIGRAM/KILOGRAM, QD (INCREASED TO 6MG)
     Route: 065
  25. PERAMPANEL [Concomitant]
     Active Substance: PERAMPANEL
     Dosage: 0.6 MILLIGRAM, QD (INCREASED TO 8MG)
  26. PERAMPANEL [Concomitant]
     Active Substance: PERAMPANEL
     Dosage: 0.6 MILLIGRAM, QD (INCREASED TO 8MG)
  27. PERAMPANEL [Concomitant]
     Active Substance: PERAMPANEL
     Dosage: 0.6 MILLIGRAM, QD (INCREASED TO 8MG)
     Route: 065
  28. PERAMPANEL [Concomitant]
     Active Substance: PERAMPANEL
     Dosage: 0.6 MILLIGRAM, QD (INCREASED TO 8MG)
     Route: 065
  29. LORAZEPAM [Concomitant]
     Active Substance: LORAZEPAM
     Indication: Status epilepticus
  30. LORAZEPAM [Concomitant]
     Active Substance: LORAZEPAM
     Route: 042
  31. LORAZEPAM [Concomitant]
     Active Substance: LORAZEPAM
     Route: 042
  32. LORAZEPAM [Concomitant]
     Active Substance: LORAZEPAM
  33. FOSPHENYTOIN [Concomitant]
     Active Substance: FOSPHENYTOIN
     Indication: Status epilepticus
  34. FOSPHENYTOIN [Concomitant]
     Active Substance: FOSPHENYTOIN
     Route: 042
  35. FOSPHENYTOIN [Concomitant]
     Active Substance: FOSPHENYTOIN
     Route: 042
  36. FOSPHENYTOIN [Concomitant]
     Active Substance: FOSPHENYTOIN
  37. MIDAZOLAM [Concomitant]
     Active Substance: MIDAZOLAM
     Indication: Status epilepticus
  38. MIDAZOLAM [Concomitant]
     Active Substance: MIDAZOLAM
  39. MIDAZOLAM [Concomitant]
     Active Substance: MIDAZOLAM
     Route: 042
  40. MIDAZOLAM [Concomitant]
     Active Substance: MIDAZOLAM
     Route: 042
  41. MIDAZOLAM [Concomitant]
     Active Substance: MIDAZOLAM
  42. MIDAZOLAM [Concomitant]
     Active Substance: MIDAZOLAM
  43. MIDAZOLAM [Concomitant]
     Active Substance: MIDAZOLAM
     Route: 065
  44. MIDAZOLAM [Concomitant]
     Active Substance: MIDAZOLAM
     Route: 065
  45. CLOBAZAM [Concomitant]
     Active Substance: CLOBAZAM
     Indication: Status epilepticus
  46. CLOBAZAM [Concomitant]
     Active Substance: CLOBAZAM
  47. CLOBAZAM [Concomitant]
     Active Substance: CLOBAZAM
     Route: 065
  48. CLOBAZAM [Concomitant]
     Active Substance: CLOBAZAM
     Route: 065
  49. CLOBAZAM [Concomitant]
     Active Substance: CLOBAZAM
  50. CLOBAZAM [Concomitant]
     Active Substance: CLOBAZAM
  51. CLOBAZAM [Concomitant]
     Active Substance: CLOBAZAM
     Route: 065
  52. CLOBAZAM [Concomitant]
     Active Substance: CLOBAZAM
     Route: 065

REACTIONS (3)
  - Agitation [Unknown]
  - Thrombocytopenia [Unknown]
  - Drug ineffective [Unknown]
